FAERS Safety Report 18788956 (Version 1)
Quarter: 2021Q1

REPORT INFORMATION
  Report Type: Spontaneous
  Country: BR (occurrence: BR)
  Receive Date: 20210126
  Receipt Date: 20210126
  Transmission Date: 20210419
  Serious: Yes (Other)
  Sender: FDA-Public Use
  Company Number: BR-BAUSCH-BL-2021-001843

PATIENT
  Age: 24 Year
  Sex: Female

DRUGS (3)
  1. D?PENICILLAMINE [Suspect]
     Active Substance: PENICILLAMINE
     Indication: HEPATO-LENTICULAR DEGENERATION
     Route: 065
  2. METHYLPREDNISOLONE. [Concomitant]
     Active Substance: METHYLPREDNISOLONE
     Indication: VASCULITIS
     Dates: start: 2012
  3. D?PENICILLAMINE [Suspect]
     Active Substance: PENICILLAMINE
     Route: 065

REACTIONS (2)
  - Copper deficiency [Recovering/Resolving]
  - Subacute combined cord degeneration [Recovering/Resolving]
